FAERS Safety Report 15195232 (Version 1)
Quarter: 2018Q3

REPORT INFORMATION
  Report Type: Spontaneous
  Country: JP (occurrence: JP)
  Receive Date: 20180725
  Receipt Date: 20180725
  Transmission Date: 20181010
  Serious: Yes (Other)
  Sender: FDA-Public Use
  Company Number: JP-SA-2018SA192297

PATIENT
  Age: 72 Year
  Sex: Male
  Weight: 49 kg

DRUGS (6)
  1. TAKECAB [Concomitant]
     Active Substance: VONOPRAZAN FUMURATE
  2. XELODA [Suspect]
     Active Substance: CAPECITABINE
     Indication: GASTRIC CANCER
     Dosage: UNK
     Route: 048
     Dates: start: 20180205
  3. ASPIRIN (E.C.) [Concomitant]
     Active Substance: ASPIRIN
  4. EMEND [APREPITANT] [Concomitant]
  5. OXALIPLATIN. [Suspect]
     Active Substance: OXALIPLATIN
     Indication: GASTRIC CANCER
     Dosage: UNK UNK, QD
     Route: 041
     Dates: start: 20180205, end: 20180604
  6. PREDONINE [PREDNISOLONE ACETATE] [Concomitant]

REACTIONS (1)
  - Hypokalaemia [Not Recovered/Not Resolved]
